FAERS Safety Report 10388901 (Version 1)
Quarter: 2014Q1

REPORT INFORMATION
  Report Type: Spontaneous
  Country: US (occurrence: None)
  Receive Date: 20140306
  Receipt Date: 20140306
  Transmission Date: 20141002
  Serious: Yes (Disabling)
  Sender: FDA-Public Use
  Company Number: 163-21880-13115035

PATIENT
  Age: 80 Year
  Sex: Female

DRUGS (9)
  1. REVLIMID (LENALIDOMIDE) (CAPSULES) [Suspect]
     Indication: MYELODYSPLASTIC SYNDROME
     Dosage: 5 MG, 21 IN 21 D, PO
     Route: 048
     Dates: start: 20130912
  2. VITAMINS [Concomitant]
  3. HYDROCODONE-ACETAMINOPHEN (VICODIN) [Concomitant]
  4. IRON [Concomitant]
  5. LEVOXYL (LEVOTHYROXINE SODIUM) [Concomitant]
  6. HYDROCHLOROTHIAZIDE [Concomitant]
  7. GLUCOSAMINE COMPLEX [Concomitant]
  8. FENTANYL [Concomitant]
  9. ADVIL (IBUPROFEN) [Concomitant]

REACTIONS (2)
  - Weight decreased [None]
  - Decreased appetite [None]
